FAERS Safety Report 6409004-0 (Version None)
Quarter: 2009Q4

REPORT INFORMATION
  Report Type: 
  Country: None (occurrence: None)
  Receive Date: 20091019
  Receipt Date: 20091019
  Transmission Date: 20100525
  Serious: Yes (Disabling)
  Sender: FDA-Public Use
  Company Number: None

PATIENT
  Age: 47 Year
  Sex: Male
  Weight: 72.1219 kg

DRUGS (2)
  1. BACTRIM [Suspect]
     Indication: CD4 LYMPHOCYTES DECREASED
     Dosage: 190 MG Q8H IV
     Route: 042
     Dates: start: 20091010, end: 20091012
  2. BACTRIM [Suspect]
     Indication: PNEUMOCYSTIS JIROVECI PNEUMONIA
     Dosage: 190 MG Q8H IV
     Route: 042
     Dates: start: 20091010, end: 20091012

REACTIONS (2)
  - HYPERKALAEMIA [None]
  - HYPONATRAEMIA [None]
